FAERS Safety Report 7932128-3 (Version None)
Quarter: 2011Q4

REPORT INFORMATION
  Report Type: 
  Country: None (occurrence: None)
  Receive Date: 20111121
  Receipt Date: 20111115
  Transmission Date: 20120403
  Serious: Yes (Death, Hospitalization)
  Sender: FDA-Public Use
  Company Number: RU-CELGENEUS-251-AB007-11090777

PATIENT
  Sex: Female
  Weight: 51 kg

DRUGS (8)
  1. ABRAXANE [Suspect]
     Dosage: 192MG
     Route: 065
     Dates: start: 20101203, end: 20110830
  2. GEMCITABINE [Suspect]
     Dosage: 948MG
     Route: 065
     Dates: end: 20110920
  3. ONDANSETRON [Concomitant]
     Indication: PROPHYLAXIS
     Route: 041
     Dates: start: 20101203
  4. DEXAMETHASONE [Concomitant]
     Indication: PROPHYLAXIS
     Route: 041
     Dates: start: 20101203
  5. SODIUM CHLORIDE [Concomitant]
     Indication: INFUSION
     Route: 041
     Dates: start: 20101118
  6. VIT B1, B6 VIT C [Concomitant]
     Route: 041
     Dates: start: 20101121
  7. ABRAXANE [Suspect]
     Dosage: 197MG
     Route: 065
     Dates: end: 20110920
  8. GEMCITABINE [Suspect]
     Dosage: 1540MG
     Route: 065
     Dates: start: 20101203, end: 20110830

REACTIONS (2)
  - MULTI-ORGAN FAILURE [None]
  - FEBRILE NEUTROPENIA [None]
